FAERS Safety Report 13086472 (Version 22)
Quarter: 2019Q3

REPORT INFORMATION
  Report Type: Spontaneous
  Country: US (occurrence: US)
  Receive Date: 20170104
  Receipt Date: 20190805
  Transmission Date: 20191004
  Serious: Yes (Hospitalization)
  Sender: FDA-Public Use
  Company Number: US-ACTELION-A-NJ2016-147743

PATIENT
  Sex: Female
  Weight: 104.31 kg

DRUGS (6)
  1. OPSUMIT [Suspect]
     Active Substance: MACITENTAN
     Dosage: 10 MG, QD
     Route: 048
  2. ADCIRCA [Concomitant]
     Active Substance: TADALAFIL
  3. OPSUMIT [Suspect]
     Active Substance: MACITENTAN
     Indication: PULMONARY ARTERIAL HYPERTENSION
     Dosage: 10 MG, QD
     Route: 048
     Dates: start: 20160620
  4. REMODULIN [Concomitant]
     Active Substance: TREPROSTINIL
  5. ORENITRAM [Suspect]
     Active Substance: TREPROSTINIL
     Indication: PRODUCT USED FOR UNKNOWN INDICATION
     Route: 065
  6. TADALAFIL. [Concomitant]
     Active Substance: TADALAFIL

REACTIONS (33)
  - Dizziness [Unknown]
  - Decreased appetite [Unknown]
  - Palpitations [Unknown]
  - Erythema [Unknown]
  - Migraine [Unknown]
  - Sepsis [Unknown]
  - Bronchitis [Unknown]
  - Tremor [Unknown]
  - Anxiety [Unknown]
  - Depressed mood [Unknown]
  - Pain [Unknown]
  - Nausea [Not Recovered/Not Resolved]
  - Visual impairment [Unknown]
  - Oxygen consumption increased [Unknown]
  - Influenza [Unknown]
  - Device related infection [Unknown]
  - Headache [Not Recovered/Not Resolved]
  - Pain in jaw [Unknown]
  - Application site irritation [Unknown]
  - Anger [Unknown]
  - Chest discomfort [Unknown]
  - Pneumonia [Unknown]
  - Application site erosion [Unknown]
  - Flushing [Not Recovered/Not Resolved]
  - Agitation [Unknown]
  - Dyspnoea [Unknown]
  - Upper respiratory tract infection [Unknown]
  - Catheter management [Unknown]
  - Vomiting [Not Recovered/Not Resolved]
  - Nasopharyngitis [Unknown]
  - Diarrhoea [Unknown]
  - Gastrointestinal disorder [Unknown]
  - Dyspnoea exertional [Unknown]
